FAERS Safety Report 7375661-8 (Version None)
Quarter: 2011Q1

REPORT INFORMATION
  Report Type: 
  Country: None (occurrence: None)
  Receive Date: 20110325
  Receipt Date: 20110321
  Transmission Date: 20110831
  Serious: No
  Sender: FDA-Public Use
  Company Number: US-PFIZER INC-2011062145

PATIENT
  Sex: Female
  Weight: 69.841 kg

DRUGS (1)
  1. GENOTROPIN [Suspect]
     Indication: BLOOD GROWTH HORMONE ABNORMAL
     Dosage: 0.3 MG, DAILY
     Route: 058

REACTIONS (3)
  - SWELLING [None]
  - PAIN [None]
  - MUSCLE DISORDER [None]
